FAERS Safety Report 15053717 (Version 3)
Quarter: 2018Q3

REPORT INFORMATION
  Report Type: Spontaneous
  Country: CA (occurrence: CA)
  Receive Date: 20180622
  Receipt Date: 20180727
  Transmission Date: 20181010
  Serious: Yes (Other)
  Sender: FDA-Public Use
  Company Number: CA-TEVA-2018-CA-913103

PATIENT

DRUGS (3)
  1. TEVA ACEBUTOLOL [Suspect]
     Active Substance: ACEBUTOLOL HYDROCHLORIDE
     Dosage: 100 MILLIGRAM DAILY;
     Route: 065
     Dates: start: 2018
  2. TEVA ACEBUTOLOL [Suspect]
     Active Substance: ACEBUTOLOL HYDROCHLORIDE
     Indication: ARRHYTHMIA
     Dosage: 100 MILLIGRAM DAILY;
     Route: 065
     Dates: start: 201801
  3. FUROSEMIDE. [Suspect]
     Active Substance: FUROSEMIDE
     Indication: ARRHYTHMIA
     Dosage: 20 MG, TO BE TAKEN ONCE OR TWICE DAILY AS NEEDED
     Route: 065
     Dates: start: 2018

REACTIONS (9)
  - Product substitution issue [Unknown]
  - Dyspnoea [Unknown]
  - Peripheral swelling [Unknown]
  - Blister [Unknown]
  - Swelling face [Unknown]
  - Hypersensitivity [Unknown]
  - Rosacea [Unknown]
  - Feeling abnormal [Unknown]
  - Swelling [Unknown]

NARRATIVE: CASE EVENT DATE: 201801
